FAERS Safety Report 5036874-3 (Version None)
Quarter: 2006Q2

REPORT INFORMATION
  Report Type: 
  Country: None (occurrence: None)
  Receive Date: 20060628
  Receipt Date: 20060619
  Transmission Date: 20061013
  Serious: Yes (Other)
  Sender: FDA-Public Use
  Company Number: 2006UW13304

PATIENT
  Sex: Female

DRUGS (5)
  1. SEROQUEL [Suspect]
     Route: 048
  2. SEROQUEL [Interacting]
     Dosage: INCREASED
     Route: 048
     Dates: start: 20060601
  3. VALPROIC ACID [Interacting]
  4. VALPROIC ACID [Interacting]
     Dosage: INCREASED DOSE
     Dates: start: 20060601
  5. RISPERDAL [Concomitant]

REACTIONS (4)
  - COORDINATION ABNORMAL [None]
  - DIFFICULTY IN WALKING [None]
  - DRUG INTERACTION [None]
  - FALL [None]
